FAERS Safety Report 6565361-6 (Version None)
Quarter: 2010Q1

REPORT INFORMATION
  Report Type: 
  Country: None (occurrence: None)
  Receive Date: 20100201
  Receipt Date: 20100121
  Transmission Date: 20100710
  Serious: Yes (Other)
  Sender: FDA-Public Use
  Company Number: US-JNJCH-2010002737

PATIENT
  Age: 67 Year
  Sex: Female
  Weight: 69.9 kg

DRUGS (4)
  1. LISTERINE ANTISEPTIC MOUTHWASH [Suspect]
     Indication: DENTAL DISORDER PROPHYLAXIS
     Dosage: TEXT:^NOT A TABLE SPOONFUL^ ONCE
     Route: 048
     Dates: start: 20100115, end: 20100115
  2. NORVASC [Concomitant]
     Indication: HYPERTENSION
     Dosage: TEXT:5MG 1 DAY
     Route: 065
  3. HUMIRA [Concomitant]
     Indication: ARTHRITIS
     Dosage: TEXT:UNKNOWN
     Route: 065
  4. TRIAMTERENE AND HYDROCHLOROTHIAZID ^HARRIS^ [Concomitant]
     Indication: HYPERTENSION
     Dosage: TEXT:37/045 MG 1 A DAY
     Route: 065

REACTIONS (4)
  - APPLICATION SITE BURN [None]
  - APPLICATION SITE EXFOLIATION [None]
  - APPLICATION SITE PAIN [None]
  - EATING DISORDER [None]
